FAERS Safety Report 9347891 (Version 1)
Quarter: 2013Q2

REPORT INFORMATION
  Report Type: Spontaneous
  Country: FR (occurrence: FR)
  Receive Date: 20130614
  Receipt Date: 20130614
  Transmission Date: 20140414
  Serious: Yes (Hospitalization)
  Sender: FDA-Public Use
  Company Number: FR-009507513-1306FRA002892

PATIENT
  Age: 69 Year
  Sex: Female

DRUGS (3)
  1. NORSET [Suspect]
     Dosage: 15 MG, QD
     Route: 048
     Dates: start: 201302
  2. INIPOMP [Suspect]
     Dosage: 40 MG, QD
     Route: 048
     Dates: start: 201302
  3. ACETAMINOPHEN [Suspect]
     Dosage: 1 G, PRN
     Route: 048
     Dates: start: 201302

REACTIONS (1)
  - Eosinophilia [Recovered/Resolved]
